FAERS Safety Report 12866990 (Version 1)
Quarter: 2016Q4

REPORT INFORMATION
  Report Type: Spontaneous
  Country: US (occurrence: US)
  Receive Date: 20161020
  Receipt Date: 20161020
  Transmission Date: 20170207
  Serious: No
  Sender: FDA-Public Use
  Company Number: US-JAZZ-2016-US-014453

PATIENT
  Sex: Female

DRUGS (17)
  1. XYREM [Suspect]
     Active Substance: SODIUM OXYBATE
     Dosage: 4.5 G, BID
     Route: 048
     Dates: start: 200811
  2. B-12 SHOT [Concomitant]
  3. PREMARIN [Concomitant]
     Active Substance: ESTROGENS, CONJUGATED
  4. LISINOPRIL. [Suspect]
     Active Substance: LISINOPRIL
     Indication: PRODUCT USED FOR UNKNOWN INDICATION
     Dosage: UNKNOWN DOSE
     Dates: start: 20150310, end: 20160802
  5. ACIPHEX [Concomitant]
     Active Substance: RABEPRAZOLE SODIUM
  6. EVOXAC [Concomitant]
     Active Substance: CEVIMELINE HYDROCHLORIDE
  7. XYREM [Suspect]
     Active Substance: SODIUM OXYBATE
     Indication: FIBROMYALGIA
     Dosage: 2.5 G, BID
     Route: 048
     Dates: start: 200810, end: 200811
  8. MTX [Concomitant]
     Active Substance: METHOTREXATE SODIUM
  9. SERTRALINE HCL [Concomitant]
     Active Substance: SERTRALINE HYDROCHLORIDE
  10. ULTRAM [Concomitant]
     Active Substance: TRAMADOL HYDROCHLORIDE
  11. CELEBREX [Concomitant]
     Active Substance: CELECOXIB
  12. AMBIEN [Concomitant]
     Active Substance: ZOLPIDEM TARTRATE
  13. LYRICA [Concomitant]
     Active Substance: PREGABALIN
  14. FOLIC ACID. [Concomitant]
     Active Substance: FOLIC ACID
  15. HUMIRA [Concomitant]
     Active Substance: ADALIMUMAB
  16. REQUIP [Concomitant]
     Active Substance: ROPINIROLE HYDROCHLORIDE
  17. ZITHROMAX [Concomitant]
     Active Substance: AZITHROMYCIN DIHYDRATE

REACTIONS (1)
  - Cough [Unknown]
